FAERS Safety Report 8681129 (Version 2)
Quarter: 2013Q4

REPORT INFORMATION
  Report Type: Spontaneous
  Country: CN (occurrence: CN)
  Receive Date: 20120725
  Receipt Date: 20131105
  Transmission Date: 20140711
  Serious: Yes (Other)
  Sender: FDA-Public Use
  Company Number: CN-009507513-1207CHN007736

PATIENT
  Age: 40 Year
  Sex: Female

DRUGS (1)
  1. MARVELON (IN ROMAN AND CHINESE) [Suspect]
     Indication: CONTRACEPTION
     Dosage: 1 DF, QD
     Route: 048

REACTIONS (1)
  - Lower limb fracture [Unknown]
